FAERS Safety Report 19761737 (Version 1)
Quarter: 2021Q3

REPORT INFORMATION
  Report Type: Report from Study
  Country: US (occurrence: US)
  Receive Date: 20210830
  Receipt Date: 20210830
  Transmission Date: 20211014
  Serious: Yes (Hospitalization, Other)
  Sender: FDA-Public Use
  Company Number: US-SA-2021SA082753

PATIENT
  Age: 63 Year
  Sex: Male

DRUGS (2)
  1. DUPILUMAB [Suspect]
     Active Substance: DUPILUMAB
     Dosage: 300 MG, QOW
     Route: 058
     Dates: end: 2019
  2. DUPILUMAB [Suspect]
     Active Substance: DUPILUMAB
     Indication: DERMATITIS ATOPIC
     Dosage: 600 MG, 1X
     Route: 058
     Dates: start: 20170801, end: 20170801

REACTIONS (13)
  - Colon cancer [Recovering/Resolving]
  - Bacterial infection [Recovering/Resolving]
  - Product storage error [Unknown]
  - Illness [Unknown]
  - Toothache [Recovering/Resolving]
  - Haematochezia [Recovering/Resolving]
  - Hip surgery [Recovering/Resolving]
  - Staphylococcal infection [Unknown]
  - Dermatitis atopic [Not Recovered/Not Resolved]
  - Cataract [Not Recovered/Not Resolved]
  - Blood pressure abnormal [Unknown]
  - Rash [Recovering/Resolving]
  - Product dose omission issue [Unknown]

NARRATIVE: CASE EVENT DATE: 2021
